FAERS Safety Report 8074165-7 (Version None)
Quarter: 2011Q4

REPORT INFORMATION
  Report Type: 
  Country: None (occurrence: None)
  Receive Date: 20111221
  Receipt Date: 20111031
  Transmission Date: 20120403
  Serious: Yes (Hospitalization)
  Sender: FDA-Public Use
  Company Number: PHEH2009US10747

PATIENT
  Age: 30 Year
  Sex: Female
  Weight: 76.2 kg

DRUGS (3)
  1. MORPHINE [Concomitant]
  2. EXJADE [Suspect]
     Indication: IRON OVERLOAD
     Dosage: 1000 MG, QD, ORAL ; 500 MG, BID ORAL
     Route: 048
     Dates: start: 20060224
  3. EXJADE [Suspect]
     Indication: IRON OVERLOAD
     Dosage: 1000 MG, QD, ORAL ; 500 MG, BID ORAL
     Route: 048
     Dates: start: 20100621

REACTIONS (7)
  - ALANINE AMINOTRANSFERASE INCREASED [None]
  - HAEMATOCRIT DECREASED [None]
  - SICKLE CELL ANAEMIA WITH CRISIS [None]
  - HEPATIC ENZYME INCREASED [None]
  - HAEMOGLOBIN DECREASED [None]
  - ASPARTATE AMINOTRANSFERASE INCREASED [None]
  - BLOOD BILIRUBIN DECREASED [None]
